FAERS Safety Report 9928517 (Version 1)
Quarter: 2014Q1

REPORT INFORMATION
  Report Type: Spontaneous
  Country: US (occurrence: None)
  Receive Date: 20140225
  Receipt Date: 20140225
  Transmission Date: 20141002
  Serious: No
  Sender: FDA-Public Use
  Company Number: C-14-009

PATIENT
  Age: 43 Year
  Sex: Male
  Weight: 99.79 kg

DRUGS (2)
  1. PHENTERMINE [Suspect]
     Indication: WEIGHT DECREASED
     Route: 048
     Dates: start: 20140128
  2. ULORC (THERAPY DATES UNKNOWN) [Concomitant]

REACTIONS (1)
  - Drug ineffective [None]
